FAERS Safety Report 21996320 (Version 5)
Quarter: 2023Q1

REPORT INFORMATION
  Report Type: Report from Study
  Country: RO (occurrence: RO)
  Receive Date: 20230215
  Receipt Date: 20230325
  Transmission Date: 20230417
  Serious: Yes (Hospitalization, Disabling)
  Sender: FDA-Public Use
  Company Number: RO-002147023-NVSC2023RO032914

PATIENT
  Age: 27 Year
  Sex: Female
  Weight: 52.9 kg

DRUGS (17)
  1. PLACEBO [Suspect]
     Active Substance: UNSPECIFIED INGREDIENT
     Indication: Lupus nephritis
     Dosage: UNK
     Route: 058
     Dates: start: 20220802
  2. MYFORTIC [Suspect]
     Active Substance: MYCOPHENOLATE SODIUM
     Indication: Lupus nephritis
     Dosage: UNK
     Route: 065
     Dates: start: 20230119
  3. MYFORTIC [Suspect]
     Active Substance: MYCOPHENOLATE SODIUM
     Indication: Systemic lupus erythematosus
  4. PREDNISONE [Suspect]
     Active Substance: PREDNISONE
     Indication: Leukopenia
     Dosage: UNK
     Route: 065
     Dates: start: 20220802, end: 20230227
  5. PREDNISONE [Suspect]
     Active Substance: PREDNISONE
     Indication: Nephritic syndrome
  6. DULCOLAX NOS [Concomitant]
     Active Substance: BISACODYL OR DOCUSATE SODIUM
     Indication: Constipation
     Dosage: UNK
     Route: 065
     Dates: start: 20220818
  7. SOLPADEINE [Concomitant]
     Indication: Headache
     Dosage: UNK
     Route: 065
     Dates: start: 20220525
  8. VITAMIN D3 [Concomitant]
     Active Substance: CHOLECALCIFEROL
     Indication: Drug therapy
     Dosage: UNK
     Route: 065
     Dates: start: 20220304
  9. ENTEROL [Concomitant]
     Indication: Prophylaxis
     Dosage: UNK
     Route: 065
     Dates: start: 20230213, end: 20230220
  10. ENTEROL [Concomitant]
     Indication: Drug therapy
  11. MAGNESIUM [Concomitant]
     Active Substance: MAGNESIUM
     Indication: Asthenia
     Dosage: UNK
     Route: 065
     Dates: start: 20220525
  12. VITAMIN B6 [Concomitant]
     Active Substance: PYRIDOXINE HYDROCHLORIDE
     Indication: Asthenia
     Dosage: UNK
     Route: 065
     Dates: start: 20220525
  13. OMEPRAZOLE [Concomitant]
     Active Substance: OMEPRAZOLE
     Indication: Drug therapy
     Dosage: UNK
     Route: 065
     Dates: start: 20220304
  14. TRIMETHOPRIM [Concomitant]
     Active Substance: TRIMETHOPRIM
     Indication: Antifungal prophylaxis
     Dosage: UNK
     Route: 065
     Dates: start: 20220304
  15. SULFAMETHOXAZOLE [Concomitant]
     Active Substance: SULFAMETHOXAZOLE
     Indication: Antifungal prophylaxis
     Dosage: UNK
     Route: 065
     Dates: start: 20220304
  16. PERINDOPRIL [Concomitant]
     Active Substance: PERINDOPRIL
     Indication: Nephritic syndrome
     Dosage: UNK
     Route: 065
     Dates: start: 20220304
  17. ACETAMINOPHEN [Concomitant]
     Active Substance: ACETAMINOPHEN
     Indication: Headache
     Dosage: UNK
     Route: 065
     Dates: start: 201711

REACTIONS (1)
  - Genital tract inflammation [Recovering/Resolving]

NARRATIVE: CASE EVENT DATE: 20230213
